FAERS Safety Report 6427429-4 (Version None)
Quarter: 2009Q4

REPORT INFORMATION
  Report Type: 
  Country: None (occurrence: None)
  Receive Date: 20091104
  Receipt Date: 20091023
  Transmission Date: 20100525
  Serious: Yes (Death, Other)
  Sender: FDA-Public Use
  Company Number: US-PFIZER INC-2009271644

PATIENT
  Sex: Female

DRUGS (1)
  1. SUTENT [Suspect]
     Dosage: 50 MG, 1X/DAY, X 28 DAYS Q 42 DAYS
     Dates: start: 20090829

REACTIONS (2)
  - DEATH [None]
  - TRANSIENT ISCHAEMIC ATTACK [None]
